FAERS Safety Report 22085222 (Version 1)
Quarter: 2023Q1

REPORT INFORMATION
  Report Type: Report from Study
  Country: CN (occurrence: CN)
  Receive Date: 20230310
  Receipt Date: 20230310
  Transmission Date: 20230418
  Serious: Yes (Hospitalization, Other)
  Sender: FDA-Public Use
  Company Number: CN-TAKEDA-2023TUS023576

PATIENT
  Age: 31 Year
  Sex: Female
  Weight: 52.5 kg

DRUGS (2)
  1. VEDOLIZUMAB [Suspect]
     Active Substance: VEDOLIZUMAB
     Indication: Colitis ulcerative
     Dosage: 300 MILLIGRAM
     Route: 042
     Dates: start: 20220615
  2. MESALAMINE [Concomitant]
     Active Substance: MESALAMINE
     Dosage: UNK
     Dates: start: 20211020

REACTIONS (2)
  - Pelvic inflammatory disease [Recovered/Resolved]
  - Uterine mass [Recovered/Resolved]

NARRATIVE: CASE EVENT DATE: 20220819
